FAERS Safety Report 20659739 (Version 2)
Quarter: 2022Q2

REPORT INFORMATION
  Report Type: Spontaneous
  Country: US (occurrence: US)
  Receive Date: 20220331
  Receipt Date: 20220426
  Transmission Date: 20220721
  Serious: Yes (Hospitalization)
  Sender: FDA-Public Use
  Company Number: US-TEVA-2022-US-2021556

PATIENT
  Age: 36 Year
  Sex: Female

DRUGS (6)
  1. EPOPROSTENOL [Suspect]
     Active Substance: EPOPROSTENOL
     Indication: Pulmonary arterial hypertension
     Route: 051
  2. SILDENAFIL [Suspect]
     Active Substance: SILDENAFIL
     Indication: Pulmonary arterial hypertension
     Dosage: 120 MILLIGRAM DAILY; THREE TIMES A DAY
     Route: 065
  3. LORAZEPAM [Suspect]
     Active Substance: LORAZEPAM
     Indication: Insomnia
     Route: 065
  4. MACITENTAN [Suspect]
     Active Substance: MACITENTAN
     Indication: Pulmonary arterial hypertension
     Dosage: 10 MILLIGRAM DAILY;
     Route: 065
  5. OXYCODONE [Concomitant]
     Active Substance: OXYCODONE
     Indication: Pain
     Dosage: 30 MILLIGRAM DAILY; THREE TIMES A DAY; FORMULATION: IMMEDIATE RELEASE
     Route: 065
  6. WARFARIN [Concomitant]
     Active Substance: WARFARIN
     Indication: Embolism venous
     Dosage: DOSED TO A GOAL INTERNATIONAL NORMALIZED RATIO OF 2 TO 3 PER THE ANTICOAGULATION CLINIC
     Route: 065

REACTIONS (3)
  - Mental status changes [Unknown]
  - Overdose [Unknown]
  - Drug ineffective [Unknown]
